FAERS Safety Report 6613302-5 (Version None)
Quarter: 2010Q1

REPORT INFORMATION
  Report Type: 
  Country: None (occurrence: None)
  Receive Date: 20100224
  Receipt Date: 20090712
  Transmission Date: 20100710
  Serious: No
  Sender: FDA-Public Use
  Company Number: 2009-00597

PATIENT
  Age: 53 Year
  Sex: Female
  Weight: 49.8957 kg

DRUGS (5)
  1. ZICAM COLD REMEDY NASAL GEL [Suspect]
     Dosage: SPORADIC - 4 YRS; ABOUT 4 YRS - RECENT
  2. ZICAM COLD REMEDY GEL SWABS [Suspect]
     Dosage: SPORADIC - 4 YRS; ABOUT 4 YRS - RECENT
  3. ZICAM COUGH MAX COUGH SPRAY [Suspect]
     Dosage: SPORADIC - 4 YRS; ABOUT 4 YRS - RECENT
  4. ZICAM ALLERGY RELIEF GEL SWABS [Suspect]
     Dosage: SPORADIC - 4 YRS; ABOUT 4 YRS - RECENT
  5. ZICAM COLD REMEDY NASAL GEL [Suspect]

REACTIONS (1)
  - ANOSMIA [None]
